FAERS Safety Report 8079384-1 (Version None)
Quarter: 2012Q1

REPORT INFORMATION
  Report Type: 
  Country: None (occurrence: None)
  Receive Date: 20120128
  Receipt Date: 20110823
  Transmission Date: 20120608
  Serious: No
  Sender: FDA-Public Use
  Company Number: US-ABBOTT-11P-163-0848604-00

PATIENT
  Age: 55 Year
  Sex: Female

DRUGS (1)
  1. HUMIRA [Suspect]
     Indication: PSORIASIS
     Dates: start: 20110701

REACTIONS (7)
  - HYPOAESTHESIA [None]
  - RASH [None]
  - SKIN EXFOLIATION [None]
  - SLEEP DISORDER [None]
  - ORAL MUCOSAL ERUPTION [None]
  - VAGINITIS BACTERIAL [None]
  - BLISTER [None]
